FAERS Safety Report 18684498 (Version 4)
Quarter: 2021Q4

REPORT INFORMATION
  Report Type: Spontaneous
  Country: JP (occurrence: None)
  Receive Date: 20201230
  Receipt Date: 20211111
  Transmission Date: 20220303
  Serious: Yes (Other)
  Sender: FDA-Public Use
  Company Number: 2020SF72370

PATIENT
  Age: 67 Year
  Sex: Male
  Weight: 73 kg

DRUGS (11)
  1. IMFINZI [Suspect]
     Active Substance: DURVALUMAB
     Indication: Non-small cell lung cancer
     Route: 042
     Dates: start: 20190726, end: 20200221
  2. IMFINZI [Suspect]
     Active Substance: DURVALUMAB
     Indication: Non-small cell lung cancer
     Route: 042
  3. OXYCODONE HYDROCHLORIDE [Suspect]
     Active Substance: OXYCODONE HYDROCHLORIDE
     Dosage: 5 MG TO 25 MG/DOSE
     Route: 048
     Dates: start: 20191213, end: 20201030
  4. CALONAL [Concomitant]
     Active Substance: ACETAMINOPHEN
     Dosage: 500 MG TO 1000 MG/DOSE
     Route: 048
     Dates: start: 20191202, end: 20200813
  5. OXINORM [Concomitant]
     Dosage: 2.5MG AS REQUIRED
     Route: 048
     Dates: start: 20191213, end: 20201030
  6. LOXOPROFEN SODIUM [Concomitant]
     Active Substance: LOXOPROFEN SODIUM
     Route: 048
     Dates: start: 20191213, end: 20200623
  7. RABEPRAZOLE SODIUM [Concomitant]
     Active Substance: RABEPRAZOLE SODIUM
     Indication: Prophylaxis
     Route: 048
     Dates: start: 20191213, end: 20200702
  8. SENNOSIDES [Concomitant]
     Active Substance: SENNOSIDES
     Indication: Constipation prophylaxis
     Dosage: 24.0MG AS REQUIRED
     Route: 048
     Dates: start: 20191213
  9. MAGNESIUM OXIDE [Concomitant]
     Active Substance: MAGNESIUM OXIDE
     Indication: Constipation prophylaxis
     Route: 048
     Dates: start: 20191227, end: 20200702
  10. POTASSIUM CITRATE\TRISODIUM CITRATE DIHYDRATE [Concomitant]
     Active Substance: POTASSIUM CITRATE\TRISODIUM CITRATE DIHYDRATE
     Indication: Hyperuricaemia
     Route: 048
     Dates: end: 20200616
  11. FEBUXOSTAT [Concomitant]
     Active Substance: FEBUXOSTAT
     Indication: Hyperuricaemia
     Route: 048
     Dates: end: 20200616

REACTIONS (4)
  - Pancreatitis acute [Recovered/Resolved]
  - Hyperthyroidism [Recovered/Resolved]
  - Hypothyroidism [Not Recovered/Not Resolved]
  - Inability to afford medication [Unknown]

NARRATIVE: CASE EVENT DATE: 20190906
